FAERS Safety Report 6832675-1 (Version None)
Quarter: 2010Q3

REPORT INFORMATION
  Report Type: 
  Country: None (occurrence: None)
  Receive Date: 20100712
  Receipt Date: 20070613
  Transmission Date: 20110219
  Serious: Yes (Other)
  Sender: FDA-Public Use
  Company Number: US-PFIZER INC-2007020321

PATIENT
  Sex: Female
  Weight: 49 kg

DRUGS (5)
  1. VARENICLINE [Suspect]
     Indication: SMOKING CESSATION THERAPY
     Route: 048
     Dates: start: 20070214
  2. PLAVIX [Suspect]
     Indication: COAGULOPATHY
     Dates: start: 20070207
  3. LOPRESSOR [Concomitant]
  4. LIPITOR [Concomitant]
  5. ACETYLSALICYLIC ACID [Concomitant]

REACTIONS (4)
  - HYPERSENSITIVITY [None]
  - PERIODONTAL DISEASE [None]
  - RASH MACULAR [None]
  - TOOTH EXTRACTION [None]
